FAERS Safety Report 25447645 (Version 5)
Quarter: 2025Q3

REPORT INFORMATION
  Report Type: Report from Study
  Country: US (occurrence: US)
  Receive Date: 20250617
  Receipt Date: 20250714
  Transmission Date: 20251021
  Serious: No
  Sender: MALLINCKRODT
  Company Number: US-MALLINCKRODT-MNK202503720

PATIENT
  Age: 4 Month
  Sex: Female
  Weight: 6 kg

DRUGS (4)
  1. CORTICOTROPIN [Suspect]
     Active Substance: CORTICOTROPIN
     Indication: Infantile spasms
     Route: 030
     Dates: start: 20250609, end: 202506
  2. CORTICOTROPIN [Suspect]
     Active Substance: CORTICOTROPIN
     Dates: start: 202506, end: 20250706
  3. KEPPRA [Concomitant]
     Active Substance: LEVETIRACETAM
  4. PREDNISOLONE [Concomitant]
     Active Substance: PREDNISOLONE

REACTIONS (2)
  - Blood pressure increased [Unknown]
  - Absence of immediate treatment response [Unknown]

NARRATIVE: CASE EVENT DATE: 20250601
